FAERS Safety Report 10564472 (Version 1)
Quarter: 2014Q4

REPORT INFORMATION
  Report Type: Spontaneous
  Country: ES (occurrence: ES)
  Receive Date: 20141104
  Receipt Date: 20141104
  Transmission Date: 20150529
  Serious: Yes (Other)
  Sender: FDA-Public Use
  Company Number: ES-TAKEDA-0225165

PATIENT
  Age: 54 Year
  Sex: Female

DRUGS (1)
  1. TACHOSIL [Suspect]
     Active Substance: FIBRINOGEN HUMAN\THROMBIN HUMAN
     Indication: HAEMORRHAGE PROPHYLAXIS

REACTIONS (5)
  - Intestinal obstruction [Recovered/Resolved]
  - Intestinal dilatation [Recovered/Resolved]
  - Vomiting [Recovered/Resolved]
  - Abdominal pain [Recovered/Resolved]
  - Wrong technique in drug usage process [Recovered/Resolved]
